FAERS Safety Report 12338736 (Version 2)
Quarter: 2016Q2

REPORT INFORMATION
  Report Type: Spontaneous
  Country: US (occurrence: US)
  Receive Date: 20160505
  Receipt Date: 20160509
  Transmission Date: 20160815
  Serious: No
  Sender: FDA-Public Use
  Company Number: US-BAYER-2016-086729

PATIENT
  Sex: Female

DRUGS (1)
  1. CLIMARA PRO [Suspect]
     Active Substance: ESTRADIOL\LEVONORGESTREL
     Dosage: DAILY DOSE .045 MG
     Route: 062

REACTIONS (5)
  - Manufacturing issue [None]
  - Device use issue [None]
  - Product adhesion issue [None]
  - Incorrect dose administered [None]
  - Device defective [None]
